FAERS Safety Report 7360781-4 (Version None)
Quarter: 2011Q1

REPORT INFORMATION
  Report Type: 
  Country: None (occurrence: None)
  Receive Date: 20110318
  Receipt Date: 20110316
  Transmission Date: 20110831
  Serious: Yes (Hospitalization, Other)
  Sender: FDA-Public Use
  Company Number: IT-PFIZER INC-2011057911

PATIENT
  Age: 73 Year
  Sex: Male

DRUGS (1)
  1. CELEBREX [Suspect]
     Indication: OSTEOARTHRITIS
     Dosage: 200 MG, 1X/DAY
     Route: 048
     Dates: start: 20110303, end: 20110309

REACTIONS (6)
  - URTICARIA [None]
  - OEDEMA [None]
  - SWELLING FACE [None]
  - LIP SWELLING [None]
  - MALAISE [None]
  - LOCAL SWELLING [None]
